FAERS Safety Report 6355789-1 (Version None)
Quarter: 2009Q3

REPORT INFORMATION
  Report Type: 
  Country: None (occurrence: None)
  Receive Date: 20090911
  Receipt Date: 20090911
  Transmission Date: 20100115
  Serious: No
  Sender: FDA-Public Use
  Company Number: None

PATIENT
  Age: 35 Year
  Sex: Female

DRUGS (1)
  1. GADOLINIUM [Suspect]
     Dosage: XI          IV
     Route: 042
     Dates: start: 20090905

REACTIONS (2)
  - PRURITUS [None]
  - URTICARIA [None]
